FAERS Safety Report 5073723-1 (Version None)
Quarter: 2006Q3

REPORT INFORMATION
  Report Type: 
  Country: None (occurrence: None)
  Receive Date: 20060808
  Receipt Date: 20040817
  Transmission Date: 20061208
  Serious: No
  Sender: FDA-Public Use
  Company Number: US-AMGEN-KDL087638

PATIENT
  Sex: Male
  Weight: 90.8 kg

DRUGS (11)
  1. PROCRIT [Suspect]
     Indication: RENAL FAILURE CHRONIC
     Dates: start: 20040504
  2. GLIPIZIDE [Concomitant]
  3. ACTOS [Concomitant]
  4. LISINOPRIL [Concomitant]
  5. COREG [Concomitant]
  6. TRICOR [Concomitant]
  7. POTASSIUM [Concomitant]
  8. FUROSEMIDE [Concomitant]
  9. PROSCAR [Concomitant]
  10. OMEPRAZOLE [Concomitant]
  11. ASPIRIN [Concomitant]

REACTIONS (1)
  - ALOPECIA [None]
